FAERS Safety Report 16439949 (Version 1)
Quarter: 2019Q2

REPORT INFORMATION
  Report Type: Spontaneous
  Country: US (occurrence: US)
  Receive Date: 20190617
  Receipt Date: 20190617
  Transmission Date: 20190711
  Serious: Yes (Other)
  Sender: FDA-Public Use
  Company Number: US-BRACCO-2018US02501

PATIENT
  Age: 67 Year
  Sex: Male

DRUGS (1)
  1. MULTIHANCE [Suspect]
     Active Substance: GADOBENATE DIMEGLUMINE
     Indication: DIAGNOSTIC PROCEDURE
     Dosage: 15 ML, SINGLE
     Route: 042
     Dates: start: 20180430, end: 20180430

REACTIONS (4)
  - Choking [Unknown]
  - Oral pruritus [Unknown]
  - Flushing [Unknown]
  - Tremor [Unknown]

NARRATIVE: CASE EVENT DATE: 20180430
